FAERS Safety Report 9851130 (Version 1)
Quarter: 2014Q1

REPORT INFORMATION
  Report Type: Report from Study
  Country: US (occurrence: US)
  Receive Date: 20140128
  Receipt Date: 20140128
  Transmission Date: 20141002
  Serious: No
  Sender: FDA-Public Use
  Company Number: US-BRACCO-008952

PATIENT
  Age: 55 Year
  Sex: Male
  Weight: 91 kg

DRUGS (2)
  1. RUBIDIUM (82 RB) [Suspect]
     Indication: POSITRON EMISSION TOMOGRAM
     Route: 042
     Dates: start: 20121212, end: 20121212
  2. RUBIDIUM (82 RB) [Suspect]
     Indication: CARDIOVASCULAR DISORDER
     Route: 042
     Dates: start: 20121212, end: 20121212

REACTIONS (1)
  - Expired drug administered [Unknown]
